FAERS Safety Report 17907473 (Version 1)
Quarter: 2020Q2

REPORT INFORMATION
  Report Type: Spontaneous
  Country: US (occurrence: US)
  Receive Date: 20200617
  Receipt Date: 20200617
  Transmission Date: 20200714
  Serious: No
  Sender: FDA-Public Use
  Company Number: US-VERTEX PHARMACEUTICALS-2020-012614

PATIENT
  Age: 50 Year
  Sex: Female

DRUGS (2)
  1. TRIKAFTA [Suspect]
     Active Substance: ELEXACAFTOR\IVACAFTOR\TEZACAFTOR
     Indication: CYSTIC FIBROSIS
     Dosage: 2 TABS(100MG ELEXACAFTOR/50MG TEZACAFYTOR/75MG IVACAFTOR)AM AND 1 TAB(150MG IVACAFTOR)PM
     Route: 048
     Dates: start: 20200530
  2. PULMOZYME [Concomitant]
     Active Substance: DORNASE ALFA

REACTIONS (2)
  - Rhinorrhoea [Recovered/Resolved]
  - Breath sounds abnormal [Unknown]

NARRATIVE: CASE EVENT DATE: 20200530
